FAERS Safety Report 5583078-1 (Version None)
Quarter: 2008Q1

REPORT INFORMATION
  Report Type: 
  Country: None (occurrence: None)
  Receive Date: 20080107
  Receipt Date: 20080103
  Transmission Date: 20080703
  Serious: Yes (Other)
  Sender: FDA-Public Use
  Company Number: B0501732A

PATIENT
  Age: 52 Year
  Sex: Male
  Weight: 87 kg

DRUGS (1)
  1. VALTREX [Suspect]
     Dosage: 500MG PER DAY
     Route: 048

REACTIONS (1)
  - GRANULOCYTOPENIA [None]
